FAERS Safety Report 5094918-7 (Version None)
Quarter: 2006Q3

REPORT INFORMATION
  Report Type: 
  Country: None (occurrence: None)
  Receive Date: 20060901
  Receipt Date: 20060809
  Transmission Date: 20061208
  Serious: Yes (Death, Other)
  Sender: FDA-Public Use
  Company Number: PHEH2006US10162

PATIENT
  Age: 72 Year
  Sex: Male

DRUGS (13)
  1. ZOMETA [Suspect]
     Indication: METASTASES TO BONE
     Dosage: 4 MG EVERY FOUR WEEKS
     Dates: start: 20040131
  2. GEMZAR [Concomitant]
  3. TAXOL [Concomitant]
  4. BENADRYL ^PFIZER WARNER-LAMBERT^ [Concomitant]
  5. NEUPOGEN [Concomitant]
  6. ADRIAMYCIN [Concomitant]
     Dosage: 17 MG, UNK
  7. ARANESP [Concomitant]
     Dosage: 150 UNK, UNK
  8. CISPLATIN [Concomitant]
     Dosage: 122 MG, UNK
  9. METHOTREXATE [Concomitant]
  10. VINBLASTINE [Concomitant]
  11. COMPAZINE [Concomitant]
  12. HEXADROL [Concomitant]
  13. TAGAMET [Concomitant]

REACTIONS (16)
  - FISTULA [None]
  - FRACTURE [None]
  - IMPAIRED HEALING [None]
  - INFECTION [None]
  - JAW OPERATION [None]
  - LYMPHADENOPATHY [None]
  - MALIGNANT NEOPLASM PROGRESSION [None]
  - MASTICATION DISORDER [None]
  - ORAL SOFT TISSUE DISORDER [None]
  - OSTEOMYELITIS [None]
  - OSTEONECROSIS [None]
  - PAIN [None]
  - RASH PUSTULAR [None]
  - SOFT TISSUE INFECTION [None]
  - SWELLING [None]
  - TOOTH EXTRACTION [None]
